FAERS Safety Report 7037182-1 (Version None)
Quarter: 2010Q4

REPORT INFORMATION
  Report Type: 
  Country: None (occurrence: None)
  Receive Date: 20101011
  Receipt Date: 20100928
  Transmission Date: 20110411
  Serious: Yes (Hospitalization)
  Sender: FDA-Public Use
  Company Number: US-ELI_LILLY_AND_COMPANY-US201006001597

PATIENT
  Sex: Female

DRUGS (11)
  1. FORTEO [Suspect]
     Indication: OSTEOPOROSIS
     Dosage: 20 UG, DAILY (1/D)
     Route: 058
  2. FORTEO [Suspect]
     Dosage: 20 UG, DAILY (1/D)
     Route: 058
  3. FORTEO [Suspect]
     Dosage: 20 UG, DAILY (1/D)
     Route: 058
  4. SOLEXA [Concomitant]
  5. AMARYL [Concomitant]
  6. METFORMIN [Concomitant]
  7. VITAMIN D [Concomitant]
  8. XANAX [Concomitant]
  9. CALTRATE + D [Concomitant]
  10. ASPIRIN [Concomitant]
  11. MAGNESIUM [Concomitant]

REACTIONS (1)
  - CHOLELITHIASIS [None]
